FAERS Safety Report 4566352-7 (Version None)
Quarter: 2005Q1

REPORT INFORMATION
  Report Type: 
  Country: None (occurrence: None)
  Receive Date: 20050201
  Receipt Date: 20050126
  Transmission Date: 20050727
  Serious: Yes (Death, Other)
  Sender: FDA-Public Use
  Company Number: PHEH2005US01340

PATIENT
  Age: 53 Year
  Sex: Male
  Weight: 114 kg

DRUGS (10)
  1. CLOZARIL [Suspect]
     Indication: SCHIZOPHRENIA
     Dosage: 450 MG, QD
     Route: 048
     Dates: end: 20030707
  2. CLOZARIL [Suspect]
     Dosage: 425 MG, QD
     Route: 048
     Dates: start: 20030708, end: 20030818
  3. CLOZARIL [Suspect]
     Dosage: 400 MG, QD
     Route: 048
     Dates: start: 20030819
  4. HYDROCHLOROTHIAZIDE [Suspect]
     Indication: HYPERTENSION
     Dosage: 25 MG, QD
     Route: 048
     Dates: start: 20030828
  5. ACCUPRIL [Suspect]
     Indication: HYPERTENSION
     Dosage: 20 MG, QD
     Route: 048
     Dates: start: 20030821
  6. DEPAKOTE [Concomitant]
     Dosage: 2250 MG, QD
  7. OXYBUTYNIN [Concomitant]
     Dosage: 5 MG, QD
  8. BISACODYL [Concomitant]
     Dosage: 5 MG, QD
  9. BACLOFEN [Concomitant]
     Dosage: 10 MG, QD
  10. MIRALAX [Concomitant]
     Indication: CONSTIPATION
     Dates: start: 20030805, end: 20030828

REACTIONS (3)
  - CONVULSION [None]
  - DRUG INTERACTION [None]
  - DRUG TOXICITY [None]
